FAERS Safety Report 11004086 (Version 1)
Quarter: 2015Q2

REPORT INFORMATION
  Report Type: Spontaneous
  Country: DE (occurrence: DE)
  Receive Date: 20150409
  Receipt Date: 20150409
  Transmission Date: 20150821
  Serious: Yes (Other)
  Sender: FDA-Public Use
  Company Number: DE-JNJFOC-JAGER28750

PATIENT
  Sex: Male

DRUGS (4)
  1. VALORON N [Concomitant]
     Active Substance: NALOXONE HYDROCHLORIDE\TILIDINE HYDROCHLORIDE
     Route: 048
  2. NALOXON [Concomitant]
     Route: 048
  3. DUROGESIC DTRANS [Suspect]
     Active Substance: FENTANYL
     Indication: NEURALGIA
     Dosage: 50 UG CUT INTO ONE FOURTH
     Route: 062
  4. DUROGESIC DTRANS [Suspect]
     Active Substance: FENTANYL
     Indication: PAIN
     Dosage: 50 UG CUT INTO ONE FOURTH
     Route: 062

REACTIONS (8)
  - Sedation [Recovered/Resolved]
  - Drug dependence [Recovered/Resolved]
  - Toxicity to various agents [Recovered/Resolved]
  - Dizziness [Recovered/Resolved]
  - Respiratory depression [Recovered/Resolved]
  - Nausea [Recovered/Resolved]
  - Wrong technique in drug usage process [Unknown]
  - Asthenia [Recovered/Resolved]
